FAERS Safety Report 6739062-5 (Version None)
Quarter: 2010Q2

REPORT INFORMATION
  Report Type: 
  Country: None (occurrence: None)
  Receive Date: 20100524
  Receipt Date: 20100512
  Transmission Date: 20101027
  Serious: Yes (Hospitalization)
  Sender: FDA-Public Use
  Company Number: US-ELI_LILLY_AND_COMPANY-US201005004572

PATIENT
  Sex: Female

DRUGS (27)
  1. FORTEO [Suspect]
     Indication: OSTEOPOROSIS
     Dosage: 20 UG, DAILY (1/D)
     Dates: start: 20100101
  2. ZYPREXA [Suspect]
     Dosage: 0.25 MG, DAILY (1/D)
  3. ZYPREXA [Suspect]
     Dosage: 0.5 MG, AS NEEDED
  4. LOPRESSOR [Concomitant]
     Dosage: 25 MG, 2/D
  5. LASIX [Concomitant]
     Dosage: 40 MG, 3/W
  6. LASIX [Concomitant]
     Dosage: 80 MG, 4/W
  7. COZAAR [Concomitant]
     Dosage: 50 MG, 2/D
  8. PREDNISONE [Concomitant]
     Dosage: 9 MG, DAILY (1/D)
  9. ASPIRIN [Concomitant]
     Dosage: 81 MG, DAILY (1/D)
  10. ZOCOR [Concomitant]
     Dosage: 20 MG, DAILY (1/D)
  11. SENOKOT [Concomitant]
     Dosage: 25.8 MG, 2/D
  12. FIBERCON [Concomitant]
     Dosage: 1250 MG, 2/D
  13. CALCIUM CITRATE W/VITAMIN D NOS [Concomitant]
     Dosage: 1 D/F, 4/D
  14. TYLENOL (CAPLET) [Concomitant]
     Dosage: 2 D/F, 3/D
  15. MS CONTIN [Concomitant]
     Dosage: 30 MG, 2/D
  16. MORPHINE SULFATE [Concomitant]
     Dosage: 7.5 MG, AS NEEDED
  17. PRIALTA [Concomitant]
  18. LIDODERM [Concomitant]
  19. NORTRIPTYLINE HCL [Concomitant]
     Dosage: 75 MG, DAILY (1/D)
  20. XANAX [Concomitant]
     Dosage: 0.5 MG, 4/D
  21. PRILOSEC [Concomitant]
     Dosage: 20 MG, DAILY (1/D)
  22. CENTRUM SILVER [Concomitant]
     Dosage: UNK, DAILY (1/D)
  23. SYSTANE [Concomitant]
     Dosage: UNK, EACH EVENING
  24. NOVOLOG [Concomitant]
     Dosage: 16 U, EACH MORNING
  25. NOVOLOG [Concomitant]
     Dosage: 12 U, DAILY (1/D)
  26. NOVOLOG [Concomitant]
     Dosage: 16 U, EACH EVENING
  27. LANTUS [Concomitant]
     Dosage: 40 U, EACH EVENING

REACTIONS (1)
  - DYSPNOEA [None]
